FAERS Safety Report 7669305-5 (Version None)
Quarter: 2011Q3

REPORT INFORMATION
  Report Type: 
  Country: None (occurrence: None)
  Receive Date: 20110808
  Receipt Date: 20110726
  Transmission Date: 20111222
  Serious: Yes (Other)
  Sender: FDA-Public Use
  Company Number: US-ROCHE-771550

PATIENT
  Sex: Female
  Weight: 80.7 kg

DRUGS (1)
  1. ACCUTANE [Suspect]
     Indication: ACNE
     Route: 065
     Dates: start: 19971201, end: 20010101

REACTIONS (2)
  - IRRITABLE BOWEL SYNDROME [None]
  - DEPRESSION [None]
